FAERS Safety Report 7555380-5 (Version None)
Quarter: 2011Q2

REPORT INFORMATION
  Report Type: 
  Country: None (occurrence: None)
  Receive Date: 20110617
  Receipt Date: 20110607
  Transmission Date: 20111010
  Serious: Yes (Hospitalization)
  Sender: FDA-Public Use
  Company Number: US-JNJFOC-20100702138

PATIENT
  Sex: Male
  Weight: 90.72 kg

DRUGS (9)
  1. STELARA [Suspect]
     Route: 058
     Dates: start: 20100615
  2. PREDNISONE [Concomitant]
  3. METHOTREXATE [Concomitant]
     Dates: start: 20100615
  4. STELARA [Suspect]
     Route: 058
     Dates: start: 20100713
  5. LEVEMIR [Concomitant]
     Indication: DIABETES MELLITUS
  6. STELARA [Suspect]
     Indication: PSORIASIS
     Route: 058
     Dates: start: 20110516
  7. SIMPONI [Suspect]
     Indication: PSORIASIS
     Dosage: 5 DOSES TOTAL
     Route: 058
     Dates: start: 20100101, end: 20110101
  8. ASACOL [Concomitant]
  9. PLAVIX [Concomitant]

REACTIONS (5)
  - MYOCARDIAL INFARCTION [None]
  - RASH PUSTULAR [None]
  - ABSCESS [None]
  - PSORIASIS [None]
  - DIVERTICULITIS [None]
